FAERS Safety Report 9646004 (Version 1)
Quarter: 2013Q4

REPORT INFORMATION
  Report Type: Spontaneous
  Country: JP (occurrence: JP)
  Receive Date: 20131025
  Receipt Date: 20131025
  Transmission Date: 20140711
  Serious: Yes (Other)
  Sender: FDA-Public Use
  Company Number: JP-GLAXOSMITHKLINE-B0935890A

PATIENT
  Age: 22 Year
  Sex: Male

DRUGS (2)
  1. ZANTAC [Suspect]
     Indication: PRODUCT USED FOR UNKNOWN INDICATION
     Route: 048
  2. UNKNOWN DRUG [Concomitant]
     Route: 048

REACTIONS (3)
  - Pancytopenia [Unknown]
  - Leukaemia [Unknown]
  - Amnesia [Unknown]
